FAERS Safety Report 8257043-X (Version None)
Quarter: 2012Q2

REPORT INFORMATION
  Report Type: 
  Country: None (occurrence: None)
  Receive Date: 20120403
  Receipt Date: 20120328
  Transmission Date: 20120825
  Serious: Yes (Other)
  Sender: FDA-Public Use
  Company Number: GB-GLAXOSMITHKLINE-B0777937A

PATIENT
  Sex: Female

DRUGS (2)
  1. REQUIP XL [Suspect]
     Indication: PARKINSON'S DISEASE
     Dosage: 20MG PER DAY
     Route: 048
     Dates: start: 20080101
  2. SINEMET [Concomitant]
     Indication: PARKINSON'S DISEASE
     Route: 048

REACTIONS (5)
  - PARANOIA [None]
  - HALLUCINATION, VISUAL [None]
  - ABNORMAL BEHAVIOUR [None]
  - HALLUCINATION, OLFACTORY [None]
  - MALAISE [None]
